FAERS Safety Report 5620224-5 (Version None)
Quarter: 2008Q1

REPORT INFORMATION
  Report Type: 
  Country: None (occurrence: None)
  Receive Date: 20080208
  Receipt Date: 20080204
  Transmission Date: 20080703
  Serious: Yes (Other)
  Sender: FDA-Public Use
  Company Number: A0707171A

PATIENT
  Age: 74 Year
  Sex: Male

DRUGS (5)
  1. AVODART [Suspect]
     Dosage: 1CAP PER DAY
     Route: 048
     Dates: start: 20070501
  2. LUPRON [Concomitant]
  3. CALCIUM GLUCONATE [Concomitant]
  4. COQ-10 [Concomitant]
  5. SAW PALMETTO [Concomitant]

REACTIONS (3)
  - ARTHRALGIA [None]
  - PROSTATE CANCER [None]
  - PROSTATIC SPECIFIC ANTIGEN INCREASED [None]
